FAERS Safety Report 9839816 (Version 1)
Quarter: 2014Q1

REPORT INFORMATION
  Report Type: Other
  Country: DE (occurrence: DE)
  Receive Date: 20140124
  Receipt Date: 20140124
  Transmission Date: 20141002
  Serious: Yes (Death)
  Sender: FDA-Public Use
  Company Number: DE-BRISTOL-MYERS SQUIBB COMPANY-20073375

PATIENT
  Sex: 0

DRUGS (3)
  1. METFORMIN HCL [Suspect]
     Indication: TYPE 2 DIABETES MELLITUS
  2. INSULIN [Concomitant]
     Indication: DIABETES MELLITUS
  3. EXENATIDE [Concomitant]
     Indication: DIABETES MELLITUS

REACTIONS (3)
  - Renal failure acute [Fatal]
  - Drug level above therapeutic [Fatal]
  - Lactic acidosis [Fatal]
